FAERS Safety Report 20484001 (Version 1)
Quarter: 2022Q1

REPORT INFORMATION
  Report Type: Spontaneous
  Country: US (occurrence: None)
  Receive Date: 20220216
  Receipt Date: 20220216
  Transmission Date: 20220424
  Serious: Yes (Other)
  Sender: FDA-Public Use
  Company Number: None

PATIENT
  Age: 38 Year
  Sex: Male
  Weight: 78.75 kg

DRUGS (1)
  1. EMGALITY [Suspect]
     Active Substance: GALCANEZUMAB-GNLM
     Indication: Migraine
     Dosage: FREQUENCY : MONTHLY;?
     Route: 030
     Dates: start: 20211001, end: 20220204

REACTIONS (5)
  - Vertigo [None]
  - Disorientation [None]
  - Dizziness [None]
  - Anxiety [None]
  - Presyncope [None]

NARRATIVE: CASE EVENT DATE: 20220203
